FAERS Safety Report 15247528 (Version 1)
Quarter: 2018Q3

REPORT INFORMATION
  Report Type: Spontaneous
  Country: US (occurrence: US)
  Receive Date: 20180807
  Receipt Date: 20180807
  Transmission Date: 20181010
  Serious: Yes (Hospitalization, Other)
  Sender: FDA-Public Use
  Company Number: US-AUROBINDO-AUR-APL-2018-040429

PATIENT
  Age: 67 Year
  Sex: Male

DRUGS (2)
  1. AMIODARONE HYDROCHLORIDE. [Suspect]
     Active Substance: AMIODARONE HYDROCHLORIDE
     Indication: ISCHAEMIC CARDIOMYOPATHY
     Dosage: UNK
     Route: 065
  2. PREDNISONE. [Concomitant]
     Active Substance: PREDNISONE
     Indication: LUNG DISORDER
     Dosage: UNK
     Route: 065

REACTIONS (8)
  - Thyrotoxic crisis [Unknown]
  - Dyspnoea [Unknown]
  - Goitre [Unknown]
  - Lung abscess [Unknown]
  - Gastrointestinal haemorrhage [Unknown]
  - Mental disorder [Unknown]
  - Ventricular tachycardia [Unknown]
  - Acute kidney injury [Unknown]
